FAERS Safety Report 8876904 (Version 1)
Quarter: 2012Q4

REPORT INFORMATION
  Report Type: 
  Country: US (occurrence: US)
  Receive Date: 20121029
  Receipt Date: 20121029
  Transmission Date: 20130627
  Serious: Yes (Hospitalization)
  Sender: FDA-Public Use
  Company Number: US-B.I. PHARMACEUTICALS,INC./RIDGEFIELD-2012-BP-26346BP

PATIENT
  Sex: Female

DRUGS (15)
  1. PRADAXA [Suspect]
     Indication: CEREBROVASCULAR ACCIDENT PROPHYLAXIS
     Dosage: 300 mg
     Route: 048
     Dates: end: 201210
  2. PRADAXA [Suspect]
     Indication: ATRIAL FIBRILLATION
  3. ZOLOFT [Concomitant]
     Dosage: 200 mg
     Route: 048
  4. MORPHINE INFUSION [Concomitant]
     Route: 042
  5. GABAPENTIN [Concomitant]
     Dosage: 90 mg
     Route: 048
  6. DIGOXIN [Concomitant]
     Dosage: 0.125 mg
     Route: 048
  7. METHIMAZOLE [Concomitant]
     Indication: THYROID DISORDER
     Dosage: 2.5 mg
     Route: 048
  8. BETHANECHOL [Concomitant]
     Dosage: 20 mg
     Route: 048
  9. DIOVAN [Concomitant]
     Dosage: 160 mg
     Route: 048
  10. METOPROLOL [Concomitant]
     Dosage: 50 mg
     Route: 048
  11. PREDNISONE [Concomitant]
     Dosage: 15 mg
     Route: 048
  12. PROPAFENONE [Concomitant]
     Dosage: 450 mg
     Route: 048
  13. PERCOCET [Concomitant]
     Dosage: 15 mg
     Route: 048
  14. RISPERDAL [Concomitant]
     Dosage: 1 mg
     Route: 048
  15. ESTROGEN/METHYLTESTOSTERONE [Concomitant]

REACTIONS (1)
  - Haemorrhage intracranial [Unknown]
